FAERS Safety Report 15130907 (Version 1)
Quarter: 2018Q3

REPORT INFORMATION
  Report Type: Spontaneous
  Country: US (occurrence: US)
  Receive Date: 20180615
  Receipt Date: 20180615
  Transmission Date: 20181010
  Serious: No
  Sender: FDA-Public Use
  Company Number: None

PATIENT
  Sex: Female
  Weight: 104.33 kg

DRUGS (4)
  1. RASUVO [Suspect]
     Active Substance: METHOTREXATE SODIUM
     Indication: RHEUMATOID ARTHRITIS
     Route: 058
     Dates: start: 201609
  2. RASUVO [Suspect]
     Active Substance: METHOTREXATE SODIUM
     Indication: ARTHRALGIA
  3. RASUVO [Suspect]
     Active Substance: METHOTREXATE SODIUM
     Indication: GRANULOMATOSIS WITH POLYANGIITIS
  4. RASUVO [Suspect]
     Active Substance: METHOTREXATE SODIUM
     Indication: DRUG THERAPY

REACTIONS (1)
  - Foot fracture [None]
